FAERS Safety Report 6476758-7 (Version None)
Quarter: 2009Q4

REPORT INFORMATION
  Report Type: 
  Country: None (occurrence: None)
  Receive Date: 20091207
  Receipt Date: 20091201
  Transmission Date: 20100525
  Serious: Yes (Hospitalization)
  Sender: FDA-Public Use
  Company Number: FR-ROCHE-672153

PATIENT
  Sex: Male

DRUGS (6)
  1. ROCEPHIN [Suspect]
     Route: 042
     Dates: start: 20091011
  2. TOPALGIC [Suspect]
     Indication: PAIN
     Dosage: AS NECESSARY
     Route: 042
     Dates: start: 20091003
  3. FLAGYL [Suspect]
     Route: 042
     Dates: start: 20091011
  4. NEXIUM [Suspect]
     Route: 042
     Dates: start: 20091003
  5. LOXEN [Concomitant]
     Dosage: DOSE: 6 MG/HOUR
     Dates: start: 20091015
  6. LOVENOX [Concomitant]
     Dates: start: 20091019

REACTIONS (1)
  - HALLUCINATION [None]
